FAERS Safety Report 6257437-8 (Version None)
Quarter: 2009Q3

REPORT INFORMATION
  Report Type: 
  Country: None (occurrence: None)
  Receive Date: 20090706
  Receipt Date: 20090624
  Transmission Date: 20100115
  Serious: Yes (Death)
  Sender: FDA-Public Use
  Company Number: KR-MERCK-0906KOR00071

PATIENT
  Age: 45 Year
  Sex: Female

DRUGS (8)
  1. PRIMAXIN [Suspect]
     Indication: FEBRILE NEUTROPENIA
     Route: 065
  2. PRIMAXIN [Suspect]
     Indication: BACTERAEMIA
     Route: 065
  3. CEFEPIME [Concomitant]
     Indication: FEBRILE NEUTROPENIA
     Route: 065
  4. CEFEPIME [Concomitant]
     Indication: BACTERAEMIA
     Route: 065
  5. VANCOMYCIN [Concomitant]
     Indication: FEBRILE NEUTROPENIA
     Route: 065
  6. VANCOMYCIN [Concomitant]
     Indication: BACTERAEMIA
     Route: 065
  7. METRONIDAZOLE [Concomitant]
     Indication: FEBRILE NEUTROPENIA
     Route: 065
  8. METRONIDAZOLE [Concomitant]
     Indication: BACTERAEMIA
     Route: 065

REACTIONS (1)
  - DEATH [None]
